FAERS Safety Report 12527335 (Version 2)
Quarter: 2016Q3

REPORT INFORMATION
  Report Type: Report from Study
  Country: US (occurrence: US)
  Receive Date: 20160705
  Receipt Date: 20160902
  Transmission Date: 20161109
  Serious: Yes (Other)
  Sender: FDA-Public Use
  Company Number: US-BAYER-2016-102451

PATIENT
  Age: 71 Year
  Sex: Male
  Weight: 80.26 kg

DRUGS (11)
  1. STIVARGA [Suspect]
     Active Substance: REGORAFENIB
     Indication: RECTAL CANCER
     Dosage: 160 MG, QD
     Route: 048
     Dates: start: 20160519, end: 201605
  2. STIVARGA [Suspect]
     Active Substance: REGORAFENIB
     Indication: RECTAL CANCER
     Dosage: 120 MG, QD (21 DAYS ON 7 DAYS OFF)
     Route: 048
     Dates: start: 201605, end: 2016
  3. TESSALON [Concomitant]
     Active Substance: BENZONATATE
     Dosage: 1 DF, TID
     Route: 048
  4. WARFARIN [Concomitant]
     Active Substance: WARFARIN
     Dosage: 1 DF, QD
     Route: 048
  5. STIVARGA [Suspect]
     Active Substance: REGORAFENIB
     Indication: RECTAL CANCER
     Dosage: 80 MG, QD
     Route: 048
     Dates: start: 201606, end: 20160627
  6. PERCOCET [Concomitant]
     Active Substance: ACETAMINOPHEN\OXYCODONE HYDROCHLORIDE
     Dosage: 2 DF, PRN
     Route: 048
  7. PHYTONADIONE. [Concomitant]
     Active Substance: PHYTONADIONE
     Dosage: 2.5 MG, QD
     Route: 048
  8. STIVARGA [Suspect]
     Active Substance: REGORAFENIB
     Indication: RECTAL CANCER
     Dosage: 160 MG, QD
     Route: 048
     Dates: end: 2016
  9. ATROPINE W/DIPHENOXYLATE [Concomitant]
     Active Substance: ATROPINE\DIPHENOXYLATE
     Dosage: 2 DF, QID
     Route: 048
  10. AMLODIPINE [Concomitant]
     Active Substance: AMLODIPINE BESYLATE
     Dosage: 1 DF, QD
     Route: 048
  11. IRINOTECAN [Concomitant]
     Active Substance: IRINOTECAN

REACTIONS (28)
  - Dehydration [Not Recovered/Not Resolved]
  - Rectal cancer [None]
  - Mass [None]
  - Chromaturia [None]
  - Dizziness [Not Recovered/Not Resolved]
  - Musculoskeletal chest pain [Recovering/Resolving]
  - Pleuritic pain [None]
  - Asthenia [Not Recovered/Not Resolved]
  - Diarrhoea [None]
  - Metastases to lung [None]
  - Decreased appetite [Not Recovered/Not Resolved]
  - Weight decreased [Not Recovered/Not Resolved]
  - Drug intolerance [None]
  - Pulmonary mass [None]
  - Fatigue [Not Recovered/Not Resolved]
  - Pyrexia [Not Recovered/Not Resolved]
  - Weight decreased [None]
  - Dyspnoea exertional [None]
  - Night sweats [None]
  - Hypophagia [Not Recovered/Not Resolved]
  - Cough [Recovering/Resolving]
  - Dry skin [Not Recovered/Not Resolved]
  - Urine output decreased [None]
  - Impaired work ability [None]
  - Hypoacusis [None]
  - Peripheral swelling [Not Recovered/Not Resolved]
  - Dysphonia [None]
  - Dysgeusia [None]

NARRATIVE: CASE EVENT DATE: 20160523
